FAERS Safety Report 20494491 (Version 1)
Quarter: 2022Q1

REPORT INFORMATION
  Report Type: Spontaneous
  Country: US (occurrence: US)
  Receive Date: 20220221
  Receipt Date: 20220221
  Transmission Date: 20220423
  Serious: No
  Sender: FDA-Public Use
  Company Number: US-SA-SAC20220214001542

PATIENT
  Age: 58 Year
  Sex: Male

DRUGS (1)
  1. DUPIXENT [Suspect]
     Active Substance: DUPILUMAB
     Dosage: 300 MG, QOW
     Route: 058
     Dates: start: 202004, end: 202201

REACTIONS (4)
  - Vision blurred [Unknown]
  - Eye inflammation [Unknown]
  - Irritability [Unknown]
  - Eye discharge [Unknown]

NARRATIVE: CASE EVENT DATE: 20211001
